FAERS Safety Report 14619297 (Version 1)
Quarter: 2018Q1

REPORT INFORMATION
  Report Type: Spontaneous
  Country: FR (occurrence: FR)
  Receive Date: 20180309
  Receipt Date: 20180309
  Transmission Date: 20180509
  Serious: Yes (Hospitalization)
  Sender: FDA-Public Use
  Company Number: FR-AUROBINDO-AUR-APL-2018-012616

PATIENT
  Age: 55 Year
  Sex: Male

DRUGS (6)
  1. UROMITEXAN [Suspect]
     Active Substance: MESNA
     Indication: HODGKIN^S DISEASE
     Dosage: NON RENSEIGN?E ()
     Route: 042
     Dates: start: 20180212, end: 20180212
  2. DOXORUBICINE                       /00330901/ [Suspect]
     Active Substance: DOXORUBICIN
     Indication: HODGKIN^S DISEASE
     Dosage: NON RENSEIGN?E ()
     Route: 042
     Dates: start: 20180212, end: 20180212
  3. PREDNISONE. [Suspect]
     Active Substance: PREDNISONE
     Indication: HODGKIN^S DISEASE
     Dosage: NON RENSEIGN?E ()
     Route: 042
     Dates: start: 20180212, end: 20180212
  4. ETOPOSIDE. [Suspect]
     Active Substance: ETOPOSIDE
     Indication: HODGKIN^S DISEASE
     Dosage: NON RENSEIGN?E ()
     Route: 042
     Dates: start: 20180212, end: 20180212
  5. CYCLOPHOSPHAMIDE. [Suspect]
     Active Substance: CYCLOPHOSPHAMIDE
     Indication: HODGKIN^S DISEASE
     Dosage: NON RENSEIGN?E ()
     Route: 042
     Dates: start: 20180212, end: 20180212
  6. PROCARBAZINE [Suspect]
     Active Substance: PROCARBAZINE
     Indication: HODGKIN^S DISEASE
     Dosage: NON RENSEIGN?E ()
     Route: 042
     Dates: start: 20180212, end: 20180212

REACTIONS (3)
  - Erythema [Recovered/Resolved]
  - Vomiting [Recovered/Resolved]
  - Hyperthermia [Recovered/Resolved]

NARRATIVE: CASE EVENT DATE: 20180212
